FAERS Safety Report 17867169 (Version 3)
Quarter: 2020Q3

REPORT INFORMATION
  Report Type: Spontaneous
  Country: US (occurrence: US)
  Receive Date: 20200605
  Receipt Date: 20200821
  Transmission Date: 20201103
  Serious: No
  Sender: FDA-Public Use
  Company Number: US-THERATECHNOLOGIES INC.-2020-THE-TES-000109

PATIENT
  Age: 53 Year
  Sex: Male

DRUGS (1)
  1. EGRIFTA SV [Suspect]
     Active Substance: TESAMORELIN ACETATE
     Indication: PRODUCT USED FOR UNKNOWN INDICATION
     Dosage: UNK
     Route: 058
     Dates: start: 202005

REACTIONS (5)
  - Abdominal distension [Recovered/Resolved]
  - Pain [Recovered/Resolved]
  - Paraesthesia [Unknown]
  - Paraesthesia [Unknown]
  - Hypoaesthesia [None]

NARRATIVE: CASE EVENT DATE: 20200809
